FAERS Safety Report 4541136-4 (Version None)
Quarter: 2004Q4

REPORT INFORMATION
  Report Type: 
  Country: None (occurrence: None)
  Receive Date: 20041229
  Receipt Date: 20041214
  Transmission Date: 20050328
  Serious: Yes (Hospitalization)
  Sender: FDA-Public Use
  Company Number: US-JNJFOC-20041103317

PATIENT
  Sex: Male
  Weight: 99.79 kg

DRUGS (8)
  1. DITROPAN XL [Suspect]
     Route: 049
  2. DDAVP [Suspect]
     Indication: DRUG USE FOR UNKNOWN INDICATION
  3. GLUCOVANCE [Concomitant]
  4. GLUCOVANCE [Concomitant]
  5. TOPROL-XL [Concomitant]
  6. AVAPRO [Concomitant]
  7. TRICOR [Concomitant]
  8. LANTUS [Concomitant]

REACTIONS (5)
  - BALANCE DISORDER [None]
  - DRUG INTERACTION [None]
  - DRY MOUTH [None]
  - FALL [None]
  - POLLAKIURIA [None]
